FAERS Safety Report 8208441-1 (Version None)
Quarter: 2012Q1

REPORT INFORMATION
  Report Type: 
  Country: None (occurrence: None)
  Receive Date: 20120314
  Receipt Date: 20120309
  Transmission Date: 20120608
  Serious: Yes (Life-Threatening, Hospitalization)
  Sender: FDA-Public Use
  Company Number: GB-PFIZER INC-2012064455

PATIENT
  Age: 69 Year
  Sex: Male
  Weight: 80 kg

DRUGS (1)
  1. PIPERACILLIN AND TAZOBACTAM [Suspect]
     Indication: SEPSIS
     Dosage: 4.5 G
     Route: 042
     Dates: start: 20120217, end: 20120220

REACTIONS (1)
  - HAEMOGLOBIN DECREASED [None]
